FAERS Safety Report 9541735 (Version 2)
Quarter: 2013Q4

REPORT INFORMATION
  Report Type: Spontaneous
  Country: DE (occurrence: DE)
  Receive Date: 20130923
  Receipt Date: 20131031
  Transmission Date: 20140711
  Serious: No
  Sender: FDA-Public Use
  Company Number: DE-AMGEN-DEUSP2013065613

PATIENT
  Sex: 0

DRUGS (1)
  1. ARANESP [Suspect]
     Indication: PRODUCT USED FOR UNKNOWN INDICATION
     Dosage: 250 MUG, QWK
     Route: 065

REACTIONS (3)
  - Drug ineffective [Unknown]
  - Serum ferritin decreased [Unknown]
  - Transferrin saturation decreased [Unknown]
